FAERS Safety Report 8177374-1 (Version None)
Quarter: 2012Q1

REPORT INFORMATION
  Report Type: 
  Country: None (occurrence: None)
  Receive Date: 20120301
  Receipt Date: 20120223
  Transmission Date: 20120608
  Serious: Yes (Hospitalization)
  Sender: FDA-Public Use
  Company Number: FR-ROCHE-1043025

PATIENT
  Sex: Male

DRUGS (7)
  1. ALLOPURINOL [Concomitant]
     Route: 048
  2. ZOLPIDEM [Concomitant]
     Route: 048
  3. NAPROXEN [Suspect]
     Indication: OSTEOARTHRITIS
     Route: 048
     Dates: start: 20110810, end: 20110816
  4. CRESTOR [Concomitant]
     Route: 048
  5. FELODIPINE [Concomitant]
     Route: 048
  6. ASPIRIN [Suspect]
     Indication: PRODUCT USED FOR UNKNOWN INDICATION
     Dosage: 1 DOSE FORM
     Route: 048
     Dates: end: 20110902
  7. ATARAX [Concomitant]
     Route: 048

REACTIONS (3)
  - ANAEMIA [None]
  - MELAENA [None]
  - GASTRIC ULCER [None]
